FAERS Safety Report 14497412 (Version 1)
Quarter: 2018Q1

REPORT INFORMATION
  Report Type: Spontaneous
  Country: IT (occurrence: IT)
  Receive Date: 20180207
  Receipt Date: 20180207
  Transmission Date: 20180509
  Serious: Yes (Hospitalization)
  Sender: FDA-Public Use
  Company Number: IT-ASTRAZENECA-2018SE12970

PATIENT
  Age: 26 Year
  Sex: Female

DRUGS (5)
  1. DEPAKIN [Suspect]
     Active Substance: VALPROATE SODIUM
     Route: 048
  2. DELORAZEPAM [Suspect]
     Active Substance: DELORAZEPAM
     Route: 048
  3. QUETIAPINE FUMARATE. [Suspect]
     Active Substance: QUETIAPINE FUMARATE
     Route: 048
  4. TRILAFON [Suspect]
     Active Substance: PERPHENAZINE
     Route: 048
  5. EFEXOR [Suspect]
     Active Substance: VENLAFAXINE HYDROCHLORIDE
     Route: 048

REACTIONS (4)
  - Sopor [Unknown]
  - Intentional self-injury [Unknown]
  - Blood creatine phosphokinase increased [Unknown]
  - Drug abuse [Unknown]

NARRATIVE: CASE EVENT DATE: 20160922
